FAERS Safety Report 8333927-9 (Version None)
Quarter: 2012Q2

REPORT INFORMATION
  Report Type: 
  Country: None (occurrence: None)
  Receive Date: 20120503
  Receipt Date: 20110125
  Transmission Date: 20120825
  Serious: Yes (Other)
  Sender: FDA-Public Use
  Company Number: US-TEVA-2011000399

PATIENT
  Sex: Female
  Weight: 57.204 kg

DRUGS (3)
  1. NUVIGIL [Suspect]
     Indication: FATIGUE
     Dosage: 250 MILLIGRAM;
     Route: 048
     Dates: start: 20110125, end: 20110125
  2. NEOCON [Concomitant]
     Indication: CONTRACEPTION
  3. LISINOPRIL [Concomitant]
     Indication: HYPERTENSION

REACTIONS (2)
  - PALPITATIONS [None]
  - DEPRESSED MOOD [None]
